FAERS Safety Report 7425536-0 (Version None)
Quarter: 2011Q2

REPORT INFORMATION
  Report Type: 
  Country: None (occurrence: None)
  Receive Date: 20110420
  Receipt Date: 20110405
  Transmission Date: 20111010
  Serious: Yes (Hospitalization)
  Sender: FDA-Public Use
  Company Number: IT-JNJFOC-20110403554

PATIENT
  Sex: Male
  Weight: 34.8 kg

DRUGS (6)
  1. PREDNISONE [Concomitant]
  2. ANTIBIOTIC NOS [Concomitant]
  3. REMICADE [Suspect]
     Indication: CROHN'S DISEASE
     Route: 042
  4. REMICADE [Suspect]
     Route: 042
  5. AZATHIOPRINE [Concomitant]
  6. MUPIROCIN [Concomitant]

REACTIONS (2)
  - RELAPSING FEVER [None]
  - DIARRHOEA [None]
